FAERS Safety Report 7281664-4 (Version None)
Quarter: 2011Q1

REPORT INFORMATION
  Report Type: 
  Country: None (occurrence: None)
  Receive Date: 20110208
  Receipt Date: 20110204
  Transmission Date: 20110831
  Serious: Yes (Death, Hospitalization, Other)
  Sender: FDA-Public Use
  Company Number: GB-PFIZER INC-2011026629

PATIENT
  Age: 88 Year
  Sex: Female

DRUGS (13)
  1. TAZOCIN [Suspect]
     Dosage: 4.5 G, 3X/DAY
     Route: 042
     Dates: start: 20090910, end: 20090914
  2. CLOPIDOGREL [Concomitant]
     Dosage: 75 MG, 1X/DAY
  3. ISOSORBIDE MONONITRATE [Concomitant]
     Dosage: 50 MG, 1X/DAY
  4. LEVOTHYROXINE [Concomitant]
     Dosage: 150 UG, 1X/DAY
  5. NICORANDIL [Concomitant]
     Dosage: 10 MG, 2X/DAY
  6. TAZOCIN [Suspect]
     Indication: CHOLECYSTITIS
     Dosage: 4.5 G, SINGLE (TOTAL)
     Route: 042
     Dates: start: 20090909, end: 20090909
  7. ENOXAPARIN SODIUM [Concomitant]
     Dosage: 40 MG UNIT DOSE
     Route: 058
  8. SIMVASTATIN [Concomitant]
     Dosage: 40 MG, 1X/DAY
  9. PARACETAMOL [Concomitant]
     Dosage: 1 G, AS NEEDED
  10. AMOXICILLIN [Suspect]
     Indication: CHOLECYSTITIS
     Dosage: 1G UNIT DOSE
     Route: 042
     Dates: start: 20090909
  11. BISOPROLOL [Concomitant]
     Dosage: 1.25 MG, 1X/DAY
  12. HYPROMELLOSE [Concomitant]
     Dosage: 1 DF, 4X/DAY
     Route: 047
  13. METRONIDAZOLE [Suspect]
     Indication: CHOLECYSTITIS
     Dosage: 500 MG UNIT DOSE
     Route: 042
     Dates: start: 20090909

REACTIONS (11)
  - BLOOD PRESSURE DECREASED [None]
  - HYPOPHAGIA [None]
  - WEIGHT DECREASED [None]
  - ANAEMIA [None]
  - CYANOSIS [None]
  - MALAISE [None]
  - ASTHENIA [None]
  - GENERAL PHYSICAL HEALTH DETERIORATION [None]
  - ABDOMINAL PAIN LOWER [None]
  - DIARRHOEA [None]
  - CLOSTRIDIAL INFECTION [None]
